FAERS Safety Report 12969540 (Version 1)
Quarter: 2016Q4

REPORT INFORMATION
  Report Type: Spontaneous
  Country: US (occurrence: US)
  Receive Date: 20161123
  Receipt Date: 20161123
  Transmission Date: 20170207
  Serious: No
  Sender: FDA-Public Use
  Company Number: US-ACTELION-A-US2016-145880

PATIENT
  Age: 25 Year
  Sex: Male

DRUGS (1)
  1. OPSUMIT [Suspect]
     Active Substance: MACITENTAN
     Indication: PULMONARY ARTERIAL HYPERTENSION
     Dosage: 10 MG, UNK
     Route: 048
     Dates: start: 20161114

REACTIONS (5)
  - Nasal congestion [Unknown]
  - Oropharyngeal pain [Unknown]
  - Chills [Unknown]
  - Rhinorrhoea [Unknown]
  - Pyrexia [Unknown]
